FAERS Safety Report 7980593-8 (Version None)
Quarter: 2011Q4

REPORT INFORMATION
  Report Type: 
  Country: None (occurrence: None)
  Receive Date: 20111214
  Receipt Date: 20111201
  Transmission Date: 20120403
  Serious: Yes (Other)
  Sender: FDA-Public Use
  Company Number: DE-PFIZER INC-K201100185

PATIENT
  Age: 45 Year
  Sex: Male

DRUGS (3)
  1. RAMIPRIL [Suspect]
     Indication: BLOOD PRESSURE ABNORMAL
     Dosage: 5 MG, 2X/DAY
     Route: 048
     Dates: start: 20090910
  2. AMLODIPINE [Concomitant]
  3. TORASEMIDE [Concomitant]
     Dosage: UNK
     Dates: start: 20100101

REACTIONS (2)
  - GINGIVAL HYPERPLASIA [None]
  - PERIODONTAL DISEASE [None]
